FAERS Safety Report 4425660-0 (Version None)
Quarter: 2004Q3

REPORT INFORMATION
  Report Type: 
  Country: None (occurrence: None)
  Receive Date: 20040716
  Receipt Date: 20040210
  Transmission Date: 20050211
  Serious: Yes (Other)
  Sender: FDA-Public Use
  Company Number: HQWYE956612FEB04

PATIENT
  Age: 68 Year
  Sex: Female

DRUGS (1)
  1. ADVIL [Suspect]
     Indication: PAIN
     Dosage: 1 GEL CAPLET AS NEEDED, ORAL
     Route: 048
     Dates: end: 20040101

REACTIONS (2)
  - EPISTAXIS [None]
  - HAEMORRHAGE [None]
